FAERS Safety Report 7688862-6 (Version None)
Quarter: 2011Q3

REPORT INFORMATION
  Report Type: 
  Country: None (occurrence: None)
  Receive Date: 20110817
  Receipt Date: 20110802
  Transmission Date: 20111222
  Serious: Yes (Other)
  Sender: FDA-Public Use
  Company Number: PHEH2011US01457

PATIENT
  Sex: Female

DRUGS (2)
  1. VALTURNA [Suspect]
     Dosage: 150 MG OF ALISKIREN AND 160 MG OF VALSARTAN, ONCE DAILY
     Dates: start: 20110802
  2. VITAMINS NOS [Concomitant]

REACTIONS (4)
  - NAUSEA [None]
  - BLOOD PRESSURE INCREASED [None]
  - DIZZINESS [None]
  - LOSS OF CONSCIOUSNESS [None]
